FAERS Safety Report 7972033-X (Version None)
Quarter: 2011Q4

REPORT INFORMATION
  Report Type: 
  Country: None (occurrence: None)
  Receive Date: 20111212
  Receipt Date: 20111206
  Transmission Date: 20120403
  Serious: Yes (Other)
  Sender: FDA-Public Use
  Company Number: NL-ABBOTT-11P-114-0858391-00

PATIENT
  Sex: Female
  Weight: 47 kg

DRUGS (3)
  1. HUMIRA [Suspect]
     Indication: CROHN'S DISEASE
     Route: 058
  2. HUMIRA [Suspect]
     Dosage: 80 MG
     Dates: start: 20110913, end: 20110913
  3. HUMIRA [Suspect]
     Dosage: 160 MG
     Dates: start: 20110830, end: 20110830

REACTIONS (10)
  - DISTURBANCE IN ATTENTION [None]
  - HEMIPARESIS [None]
  - SPEECH DISORDER [None]
  - NERVE INJURY [None]
  - TINNITUS [None]
  - TONGUE DISORDER [None]
  - CONTUSION [None]
  - PARAESTHESIA [None]
  - JOINT STIFFNESS [None]
  - HEADACHE [None]
